FAERS Safety Report 8462800-0 (Version None)
Quarter: 2012Q2

REPORT INFORMATION
  Report Type: 
  Country: None (occurrence: None)
  Receive Date: 20120625
  Receipt Date: 20120614
  Transmission Date: 20120825
  Serious: Yes (Other)
  Sender: FDA-Public Use
  Company Number: JP-VERTEX PHARMACEUTICALS INC.-AE-2012-006323

PATIENT
  Age: 63 Year
  Sex: Male

DRUGS (9)
  1. AMLODIPINE BESYLATE [Concomitant]
     Route: 048
  2. SELBEX [Concomitant]
     Route: 048
  3. PEGINTERFERON ALFA-2B [Concomitant]
     Indication: HEPATITIS C
     Route: 058
     Dates: start: 20120305
  4. ZOLPIDEM [Concomitant]
     Route: 048
  5. LIPITOR [Concomitant]
     Route: 048
     Dates: start: 20120423
  6. RIBAVIRIN [Concomitant]
     Indication: HEPATITIS C
     Route: 048
     Dates: start: 20120305
  7. TELAVIC (TELAPREVIR) [Suspect]
     Indication: HEPATITIS C
     Route: 048
     Dates: start: 20120305, end: 20120419
  8. FAMOTIDINE [Concomitant]
     Route: 048
  9. RHYTHMY [Concomitant]
     Route: 048

REACTIONS (1)
  - DRUG ERUPTION [None]
